APPROVED DRUG PRODUCT: ESOMEPRAZOLE MAGNESIUM
Active Ingredient: ESOMEPRAZOLE MAGNESIUM
Strength: EQ 20MG BASE
Dosage Form/Route: CAPSULE, DELAYED RELEASE;ORAL
Application: A212866 | Product #001
Applicant: SUN PHARMACEUTICAL INDUSTRIES LTD
Approved: May 4, 2020 | RLD: No | RS: No | Type: OTC